FAERS Safety Report 11357105 (Version 1)
Quarter: 2015Q3

REPORT INFORMATION
  Report Type: Spontaneous
  Country: US (occurrence: US)
  Receive Date: 20150803
  Receipt Date: 20150803
  Transmission Date: 20151125
  Serious: No
  Sender: FDA-Public Use
  Company Number: US-ELI_LILLY_AND_COMPANY-US201309003610

PATIENT
  Sex: Male

DRUGS (6)
  1. MIRALAX [Suspect]
     Active Substance: POLYETHYLENE GLYCOL 3350
     Dosage: 17 G, SINGLE
     Route: 065
     Dates: start: 201308, end: 201308
  2. ZYPREXA [Suspect]
     Active Substance: OLANZAPINE
     Dosage: 10 MG, SINGLE
     Route: 048
     Dates: start: 201308, end: 201308
  3. DEPAKOTE ER [Suspect]
     Active Substance: DIVALPROEX SODIUM
     Indication: SEIZURE
     Dosage: 1250 MG, SINGLE
     Route: 048
     Dates: start: 201308, end: 201308
  4. INDERAL [Suspect]
     Active Substance: PROPRANOLOL HYDROCHLORIDE
     Dosage: 60 MG, SINGLE
     Route: 065
     Dates: start: 201308, end: 201308
  5. TRAZODONE [Suspect]
     Active Substance: TRAZODONE HYDROCHLORIDE
     Dosage: 1 DF, SINGLE
     Route: 065
     Dates: start: 201308, end: 201308
  6. COLACE [Suspect]
     Active Substance: DOCUSATE SODIUM
     Dosage: 100 MG, SINGLE
     Route: 048
     Dates: start: 201308, end: 201308

REACTIONS (3)
  - Sedation [Unknown]
  - Anticonvulsant drug level increased [Unknown]
  - Wrong patient received medication [Unknown]

NARRATIVE: CASE EVENT DATE: 201308
